FAERS Safety Report 5210844-4 (Version None)
Quarter: 2007Q1

REPORT INFORMATION
  Report Type: 
  Country: None (occurrence: None)
  Receive Date: 20070117
  Receipt Date: 20070109
  Transmission Date: 20070707
  Serious: Yes (Hospitalization)
  Sender: FDA-Public Use
  Company Number: JP-PFIZER INC-2006155543

PATIENT
  Sex: Male

DRUGS (7)
  1. MIGLITOL TABLET [Suspect]
     Indication: DIABETES MELLITUS NON-INSULIN-DEPENDENT
     Dosage: DAILY DOSE:150MG-FREQ:DAILY
     Route: 048
     Dates: start: 20061018, end: 20061215
  2. MIGLITOL TABLET [Suspect]
     Dosage: DAILY DOSE:75MG-FREQ:FREQUENCY: DAILY
     Route: 048
     Dates: start: 20060822, end: 20061017
  3. MEDET [Concomitant]
     Indication: DIABETES MELLITUS
     Dosage: DAILY DOSE:750MG
     Route: 048
  4. CYANOCOBALAMIN [Concomitant]
     Indication: DIABETIC NEUROPATHY
     Dosage: DAILY DOSE:1.5MG
     Route: 048
  5. PURSENNIDE [Concomitant]
     Indication: CONSTIPATION
     Dosage: DAILY DOSE:12MG
     Route: 048
     Dates: start: 20061018, end: 20061102
  6. SARALIN [Concomitant]
     Indication: CONSTIPATION
     Route: 048
     Dates: start: 20061103
  7. TAKEPRON [Concomitant]
     Indication: REFLUX OESOPHAGITIS
     Dosage: DAILY DOSE:15MG
     Route: 048
     Dates: start: 20061122

REACTIONS (1)
  - LARGE INTESTINE CARCINOMA [None]
